FAERS Safety Report 7824799-7 (Version None)
Quarter: 2011Q4

REPORT INFORMATION
  Report Type: 
  Country: None (occurrence: None)
  Receive Date: 20111019
  Receipt Date: 20110307
  Transmission Date: 20120403
  Serious: No
  Sender: FDA-Public Use
  Company Number: US-BRISTOL-MYERS SQUIBB COMPANY-15513773

PATIENT
  Age: 79 Year
  Sex: Female

DRUGS (8)
  1. AVALIDE [Suspect]
     Indication: HYPERTENSION
     Dosage: 1 DF=300/25 MG
     Route: 048
     Dates: start: 20100816, end: 20110127
  2. ZOLPIDEM [Concomitant]
  3. FLUTICASONE PROPIONATE [Concomitant]
  4. SIMVASTATIN [Concomitant]
  5. ASPIRIN [Concomitant]
  6. MULTI-VITAMIN [Concomitant]
  7. PLAVIX [Suspect]
     Dosage: THEN TAKING THE 75MG DOSE EVERY OTHER DAY
  8. AMLODIPINE [Concomitant]

REACTIONS (3)
  - DECREASED ACTIVITY [None]
  - DIZZINESS [None]
  - PIGMENTATION DISORDER [None]
